FAERS Safety Report 24536117 (Version 1)
Quarter: 2024Q4

REPORT INFORMATION
  Report Type: Spontaneous
  Country: FR (occurrence: FR)
  Receive Date: 20241022
  Receipt Date: 20241022
  Transmission Date: 20250115
  Serious: Yes (Hospitalization, Other)
  Sender: B BRAUN
  Company Number: FR-B.Braun Medical Inc.-2163567

PATIENT
  Age: 63 Year
  Sex: Male
  Weight: 113 kg

DRUGS (14)
  1. ACETAMINOPHEN [Suspect]
     Active Substance: ACETAMINOPHEN
     Indication: Erysipelas
  2. AMOXICILLIN [Suspect]
     Active Substance: AMOXICILLIN
  3. AMLODIPINE [Concomitant]
     Active Substance: AMLODIPINE BESYLATE
  4. ECONAZOLE. [Concomitant]
     Active Substance: ECONAZOLE NITRATE
  5. IPRATROPIUM [Concomitant]
     Active Substance: IPRATROPIUM
  6. PYRIDOXINE [Concomitant]
     Active Substance: PYRIDOXINE
  7. THIAMINE [Concomitant]
     Active Substance: THIAMINE
  8. TRAMADOL [Concomitant]
     Active Substance: TRAMADOL
  9. TERBUTALINE [Concomitant]
     Active Substance: TERBUTALINE
  10. NEBIVOLOL [Concomitant]
     Active Substance: NEBIVOLOL
  11. ROSUVASTATIN [Concomitant]
     Active Substance: ROSUVASTATIN
  12. LEVOFLOXACIN [Suspect]
     Active Substance: LEVOFLOXACIN
  13. WARFARIN SODIUM [Suspect]
     Active Substance: WARFARIN SODIUM
  14. CLINDAMYCIN [Suspect]
     Active Substance: CLINDAMYCIN

REACTIONS (3)
  - Anaemia [Recovered/Resolved with Sequelae]
  - Off label use [Recovered/Resolved with Sequelae]
  - Gastric ulcer haemorrhage [Recovered/Resolved with Sequelae]
